FAERS Safety Report 4766885-4 (Version None)
Quarter: 2005Q3

REPORT INFORMATION
  Report Type: 
  Country: None (occurrence: None)
  Receive Date: 20050909
  Receipt Date: 20050427
  Transmission Date: 20060218
  Serious: Yes (Other)
  Sender: FDA-Public Use
  Company Number: 2005058420

PATIENT
  Sex: Male

DRUGS (1)
  1. BEXTRA [Suspect]
     Indication: SKELETAL INJURY
     Dosage: ORAL
     Route: 048
     Dates: start: 20040101

REACTIONS (1)
  - DRUG HYPERSENSITIVITY [None]
